FAERS Safety Report 10090453 (Version 1)
Quarter: 2014Q2

REPORT INFORMATION
  Report Type: Spontaneous
  Country: US (occurrence: US)
  Receive Date: 20140421
  Receipt Date: 20140421
  Transmission Date: 20141212
  Serious: Yes (Other)
  Sender: FDA-Public Use
  Company Number: US-BAYER-2014-056463

PATIENT
  Age: 43 Year
  Sex: Female

DRUGS (2)
  1. YAZ [Suspect]
  2. ALLEGRA-D [Concomitant]
     Dosage: UNK UNK, BID
     Dates: start: 20080729

REACTIONS (2)
  - Deep vein thrombosis [None]
  - Thrombophlebitis superficial [None]
